FAERS Safety Report 12972384 (Version 1)
Quarter: 2016Q4

REPORT INFORMATION
  Report Type: Report from Study
  Country: KR (occurrence: KR)
  Receive Date: 20161124
  Receipt Date: 20161124
  Transmission Date: 20170207
  Serious: No
  Sender: FDA-Public Use
  Company Number: KR-PROSTRAKAN-2016-KR-0166

PATIENT

DRUGS (11)
  1. BASEN [Concomitant]
     Active Substance: VOGLIBOSE
     Indication: DIABETES MELLITUS
     Dosage: UNKNOWN
     Route: 065
     Dates: start: 20110620
  2. LEGALON [Concomitant]
     Active Substance: MILK THISTLE
     Indication: CHRONIC HEPATITIS B
     Dosage: UNKNOWN
     Route: 065
     Dates: start: 20110620
  3. GRANISETRON [Suspect]
     Active Substance: GRANISETRON
     Indication: PROPHYLAXIS OF NAUSEA AND VOMITING
     Dosage: UNKNOWN
     Route: 062
     Dates: start: 20110620, end: 20110625
  4. GLUCOPHAGE [Concomitant]
     Active Substance: METFORMIN HYDROCHLORIDE
     Indication: DIABETES MELLITUS
     Dosage: UNKNOWN
     Route: 065
     Dates: start: 20110620
  5. URSA [Concomitant]
     Indication: CHRONIC HEPATITIS B
     Dosage: UNKNOWN
     Route: 065
     Dates: start: 20110620
  6. VITAMEDIN [Concomitant]
     Active Substance: CYANOCOBALAMIN\PYRIDOXINE HYDROCHLORIDE\THIAMINE
     Indication: CHRONIC HEPATITIS B
     Dosage: UNKNOWN
     Route: 065
     Dates: start: 20110620
  7. CISPLAN [Concomitant]
     Active Substance: CISPLATIN
     Indication: PRODUCT USED FOR UNKNOWN INDICATION
     Dosage: UNKNOWN
     Route: 065
     Dates: start: 20110621, end: 20110621
  8. AMODIPIN [Concomitant]
     Indication: HYPERTENSION
     Dosage: UNKNOWN
     Route: 065
     Dates: start: 20110620, end: 20110625
  9. FLAGYL [Concomitant]
     Active Substance: METRONIDAZOLE\METRONIDAZOLE HYDROCHLORIDE
     Indication: HEPATOCELLULAR CARCINOMA
     Dosage: UNKNOWN
     Route: 065
     Dates: start: 20110622
  10. MERIT C [Concomitant]
     Indication: HEPATOCELLULAR CARCINOMA
     Dosage: UNKNOWN
     Route: 065
     Dates: start: 20110622
  11. GLIMEL [Concomitant]
     Indication: DIABETES MELLITUS
     Dosage: UNKNOWN
     Route: 065
     Dates: start: 20110620

REACTIONS (2)
  - Alanine aminotransferase increased [Recovered/Resolved]
  - Aspartate aminotransferase increased [Recovered/Resolved]

NARRATIVE: CASE EVENT DATE: 20110622
